FAERS Safety Report 20532365 (Version 2)
Quarter: 2022Q2

REPORT INFORMATION
  Report Type: Spontaneous
  Country: FR (occurrence: FR)
  Receive Date: 20220301
  Receipt Date: 20220413
  Transmission Date: 20220721
  Serious: Yes (Other)
  Sender: FDA-Public Use
  Company Number: FR-ALIMERA SCIENCES LIMITED-FR-A16013-22-000036

PATIENT
  Age: 50 Year
  Sex: Male

DRUGS (1)
  1. ILUVIEN [Suspect]
     Active Substance: FLUOCINOLONE ACETONIDE
     Indication: Cystoid macular oedema
     Dosage: 0.25 MICROGRAM, QD -UNKNOWN EYE
     Route: 031
     Dates: start: 20220216

REACTIONS (4)
  - Hypotony of eye [Recovered/Resolved]
  - Chorioretinal folds [Unknown]
  - Intraocular pressure increased [Recovered/Resolved]
  - Off label use [Unknown]

NARRATIVE: CASE EVENT DATE: 20220216
